FAERS Safety Report 18261718 (Version 1)
Quarter: 2020Q3

REPORT INFORMATION
  Report Type: Spontaneous
  Country: US (occurrence: US)
  Receive Date: 20200912
  Receipt Date: 20200912
  Transmission Date: 20201103
  Serious: Yes (Hospitalization)
  Sender: FDA-Public Use
  Company Number: None

PATIENT
  Sex: Female
  Weight: 57.2 kg

DRUGS (1)
  1. PACLITAXEL (TAXOL) (673089) [Suspect]
     Active Substance: PACLITAXEL
     Dates: end: 20200820

REACTIONS (5)
  - Eating disorder [None]
  - Vomiting [None]
  - Ascites [None]
  - Abdominal distension [None]
  - Nausea [None]

NARRATIVE: CASE EVENT DATE: 20200823
